FAERS Safety Report 24738318 (Version 1)
Quarter: 2024Q4

REPORT INFORMATION
  Report Type: Spontaneous
  Country: RU (occurrence: RU)
  Receive Date: 20241216
  Receipt Date: 20241216
  Transmission Date: 20250115
  Serious: Yes (Life-Threatening, Other)
  Sender: FRESENIUS KABI
  Company Number: RU-FreseniusKabi-FK202418714

PATIENT
  Sex: Male
  Weight: 75 kg

DRUGS (2)
  1. PROPOFOL [Suspect]
     Active Substance: PROPOFOL
     Indication: Induction of anaesthesia
     Dosage: INDUCTION OF ANESTHESIA
     Route: 042
     Dates: start: 20241118, end: 20241118
  2. PROPOFOL [Suspect]
     Active Substance: PROPOFOL
     Indication: Maintenance of anaesthesia
     Dosage: FREQUENCY: ONE TIME?MAINTENANCE OF ANESTHESIA
     Route: 041
     Dates: start: 20241118, end: 20241118

REACTIONS (1)
  - Anaphylactic shock [Recovered/Resolved]

NARRATIVE: CASE EVENT DATE: 20241118
